FAERS Safety Report 7391733-6 (Version None)
Quarter: 2011Q2

REPORT INFORMATION
  Report Type: 
  Country: None (occurrence: None)
  Receive Date: 20110404
  Receipt Date: 20110328
  Transmission Date: 20111010
  Serious: Yes (Other)
  Sender: FDA-Public Use
  Company Number: FR-PFIZER INC-2011069231

PATIENT
  Sex: Female

DRUGS (2)
  1. TRIPHASIL-21 [Suspect]
     Indication: CONTRACEPTION
  2. HUMIRA [Suspect]
     Indication: PSORIASIS

REACTIONS (2)
  - QUADRIPARESIS [None]
  - SPINAL CORD ISCHAEMIA [None]
